FAERS Safety Report 20127682 (Version 1)
Quarter: 2021Q4

REPORT INFORMATION
  Report Type: Spontaneous
  Country: CA (occurrence: CA)
  Receive Date: 20211129
  Receipt Date: 20211129
  Transmission Date: 20220303
  Serious: Yes (Hospitalization)
  Sender: FDA-Public Use
  Company Number: CA-TEVA-2021-CA-1980353

PATIENT
  Age: 12 Year
  Sex: Male
  Weight: 63 kg

DRUGS (6)
  1. PROPOFOL [Suspect]
     Active Substance: PROPOFOL
     Indication: Induction of anaesthesia
     Route: 042
  2. PROPOFOL [Suspect]
     Active Substance: PROPOFOL
     Route: 042
  3. DEXAMETHASONE [Concomitant]
     Active Substance: DEXAMETHASONE
     Route: 065
  4. DEXMEDETOMIDINE [Concomitant]
     Active Substance: DEXMEDETOMIDINE
  5. ONDANSETRON [Concomitant]
     Active Substance: ONDANSETRON
  6. REMIFENTANIL [Concomitant]
     Active Substance: REMIFENTANIL
     Route: 042

REACTIONS (2)
  - Lethargy [Recovered/Resolved]
  - Somnolence [Recovered/Resolved]
